FAERS Safety Report 4323317-8 (Version None)
Quarter: 2004Q1

REPORT INFORMATION
  Report Type: 
  Country: None (occurrence: None)
  Receive Date: 20040323
  Receipt Date: 20031114
  Transmission Date: 20041129
  Serious: No
  Sender: FDA-Public Use
  Company Number: M03-341-157

PATIENT
  Age: 77 Year
  Sex: Male

DRUGS (3)
  1. VELCADE [Suspect]
     Indication: MULTIPLE MYELOMA
     Dosage: BIW
     Dates: start: 20030826
  2. DEXAMETHASONE [Concomitant]
  3. ZOMETA [Concomitant]

REACTIONS (2)
  - EYE IRRITATION [None]
  - EYE REDNESS [None]
